FAERS Safety Report 25093886 (Version 1)
Quarter: 2025Q1

REPORT INFORMATION
  Report Type: Spontaneous
  Country: US (occurrence: US)
  Receive Date: 20250319
  Receipt Date: 20250319
  Transmission Date: 20250408
  Serious: Yes (Other)
  Sender: MYLAN
  Company Number: US-MYLANLABS-2025M1021169

PATIENT
  Age: 36 Year
  Sex: Female

DRUGS (7)
  1. ARIPIPRAZOLE [Suspect]
     Active Substance: ARIPIPRAZOLE
     Indication: Autism spectrum disorder
     Dosage: 10 MILLIGRAM, QD
  2. ARIPIPRAZOLE [Suspect]
     Active Substance: ARIPIPRAZOLE
     Indication: Catatonia
  3. LURASIDONE [Suspect]
     Active Substance: LURASIDONE
     Indication: Autism spectrum disorder
     Dosage: 120 MILLIGRAM, QD, HS (AT NIGHT)
  4. LURASIDONE [Suspect]
     Active Substance: LURASIDONE
     Indication: Catatonia
  5. QUETIAPINE [Suspect]
     Active Substance: QUETIAPINE
     Indication: Autism spectrum disorder
     Dosage: 200 MILLIGRAM, QD, HS (AT NIGHT)
  6. QUETIAPINE [Suspect]
     Active Substance: QUETIAPINE
     Indication: Catatonia
  7. VALPROATE SODIUM [Concomitant]
     Active Substance: VALPROATE SODIUM
     Indication: Generalised tonic-clonic seizure
     Dosage: 500 MILLIGRAM, BID

REACTIONS (2)
  - Drug ineffective for unapproved indication [Unknown]
  - Off label use [Unknown]
